FAERS Safety Report 15525913 (Version 2)
Quarter: 2018Q4

REPORT INFORMATION
  Report Type: Spontaneous
  Country: DE (occurrence: DE)
  Receive Date: 20181018
  Receipt Date: 20181025
  Transmission Date: 20190205
  Serious: Yes (Hospitalization)
  Sender: FDA-Public Use
  Company Number: DE-TEVA-2018-DE-963281

PATIENT
  Age: 82 Year
  Sex: Female

DRUGS (2)
  1. OLMESARTAN-MEDOXOMIL [Suspect]
     Active Substance: OLMESARTAN MEDOXOMIL
     Indication: HYPERTENSION
     Dosage: SINCE TWO YEARS
     Route: 065
  2. AMLODIPINE [Concomitant]
     Active Substance: AMLODIPINE BESYLATE
     Indication: HYPERTENSION
     Dosage: SINCE TWO YEARS
     Route: 065

REACTIONS (2)
  - Sprue-like enteropathy [Recovered/Resolved]
  - Colitis [Recovered/Resolved]
